FAERS Safety Report 6337841-X (Version None)
Quarter: 2009Q3

REPORT INFORMATION
  Report Type: 
  Country: None (occurrence: None)
  Receive Date: 20090902
  Receipt Date: 20090831
  Transmission Date: 20100115
  Serious: Yes (Life-Threatening, Hospitalization, Disabling, Other)
  Sender: FDA-Public Use
  Company Number: A0805238A

PATIENT
  Age: 34 Year
  Sex: Male
  Weight: 72.7 kg

DRUGS (2)
  1. PAXIL [Suspect]
     Indication: DRUG USE FOR UNKNOWN INDICATION
     Dosage: 60MG PER DAY
     Route: 048
  2. EFFEXOR XR [Concomitant]
     Indication: DRUG USE FOR UNKNOWN INDICATION
     Route: 065

REACTIONS (18)
  - AMNESIA [None]
  - ARTHRITIS [None]
  - BRAIN INJURY [None]
  - CONFUSIONAL STATE [None]
  - CRANIAL NEUROPATHY [None]
  - DISORIENTATION [None]
  - DRUG WITHDRAWAL HEADACHE [None]
  - DYSTONIA [None]
  - FLAT AFFECT [None]
  - NERVOUS SYSTEM DISORDER [None]
  - NEURALGIA [None]
  - NEUROLOGICAL SYMPTOM [None]
  - NEUROPATHY PERIPHERAL [None]
  - PERSONALITY CHANGE [None]
  - PHYSICAL DISABILITY [None]
  - SEROTONIN SYNDROME [None]
  - THINKING ABNORMAL [None]
  - WITHDRAWAL SYNDROME [None]
